FAERS Safety Report 6387985-1 (Version None)
Quarter: 2009Q3

REPORT INFORMATION
  Report Type: 
  Country: None (occurrence: None)
  Receive Date: 20090930
  Receipt Date: 20090924
  Transmission Date: 20100115
  Serious: Yes (Other)
  Sender: FDA-Public Use
  Company Number: A20090723-001

PATIENT
  Age: 84 Year
  Sex: Female

DRUGS (8)
  1. PITAVASTATIN CALCIUM [Suspect]
     Indication: HYPERLIPIDAEMIA
     Dosage: 4MG OVER THREE YEARS AGO - 5 SEPT. 2009
     Route: 048
     Dates: end: 20090905
  2. BENIDIPINE HYDROCHLORIDE [Concomitant]
  3. TELMISARTAN [Concomitant]
  4. CARVEDILOL [Concomitant]
  5. CILOSTAZOL [Concomitant]
  6. FUROSEMIDE [Concomitant]
  7. GLIMEPIRIDE [Concomitant]
  8. VOGLIBOSE [Concomitant]

REACTIONS (5)
  - DEHYDRATION [None]
  - HAEMODIALYSIS [None]
  - MALNUTRITION [None]
  - RENAL FAILURE [None]
  - RHABDOMYOLYSIS [None]
